FAERS Safety Report 6702217-X (Version None)
Quarter: 2010Q2

REPORT INFORMATION
  Report Type: 
  Country: None (occurrence: None)
  Receive Date: 20100429
  Receipt Date: 20100426
  Transmission Date: 20101027
  Serious: Yes (Life-Threatening, Hospitalization, Other)
  Sender: FDA-Public Use
  Company Number: HR-SANOFI-AVENTIS-2010SA024051

PATIENT
  Age: 70 Year
  Sex: Male

DRUGS (14)
  1. LANTUS [Suspect]
     Route: 058
     Dates: start: 20031222
  2. OPTIPEN [Suspect]
  3. BLINDED THERAPY [Suspect]
     Dates: start: 20040216, end: 20090818
  4. MOXONIDINE [Concomitant]
     Indication: HYPERTENSION
     Dosage: 0.2 (NOS)
  5. AMLOPIN [Concomitant]
     Indication: HYPERTENSION
     Dosage: 15.0 (NOS)
  6. LUPOCET [Concomitant]
     Indication: PAIN
     Dosage: 1500 (NOS)
  7. IBUPROFEN [Concomitant]
     Indication: PAIN
     Dosage: 120 (NOS)
  8. FOLACIN [Concomitant]
     Dosage: 5.0 (NOS)
  9. ALL OTHER THERAPEUTIC PRODUCTS [Concomitant]
     Dosage: 40(NOS)
  10. ALL OTHER THERAPEUTIC PRODUCTS [Concomitant]
  11. ASPIRIN [Concomitant]
  12. ALL OTHER THERAPEUTIC PRODUCTS [Concomitant]
  13. ARANESP [Concomitant]
     Route: 042
  14. ALL OTHER THERAPEUTIC PRODUCTS [Concomitant]

REACTIONS (1)
  - NON-SMALL CELL LUNG CANCER [None]
